FAERS Safety Report 9300129 (Version 1)
Quarter: 2013Q1

REPORT INFORMATION
  Report Type: Spontaneous
  Country: US (occurrence: None)
  Receive Date: 20121231
  Receipt Date: 20121231
  Transmission Date: 20140127
  Serious: Yes (Hospitalization)
  Sender: FDA-Public Use
  Company Number: RB-44359-2012

PATIENT
  Age: 31 Year
  Sex: Female

DRUGS (1)
  1. SUBOXONE 8MG/2 [Suspect]
     Indication: DRUG DEPENDENCE
     Route: 050
     Dates: start: 2011, end: 201208

REACTIONS (5)
  - Substance abuse [None]
  - Wrong technique in drug usage process [None]
  - Back pain [None]
  - Arthralgia [None]
  - Staphylococcal infection [None]
